FAERS Safety Report 12454952 (Version 1)
Quarter: 2016Q2

REPORT INFORMATION
  Report Type: Spontaneous
  Country: US (occurrence: None)
  Receive Date: 20160609
  Receipt Date: 20160609
  Transmission Date: 20160815
  Serious: Yes (Other)
  Sender: FDA-Public Use
  Company Number: None

PATIENT
  Age: 75 Year
  Sex: Female
  Weight: 89.81 kg

DRUGS (25)
  1. LISINOPRIL. [Concomitant]
     Active Substance: LISINOPRIL
  2. IMITRIX [Concomitant]
  3. ONE A DAY WOMENS^ VITAMIN [Concomitant]
  4. HUMULIN NOS [Concomitant]
     Active Substance: INSULIN HUMAN
  5. POTASSIUM CHLORIDE ER [Concomitant]
     Active Substance: POTASSIUM CHLORIDE
  6. VITAMIN B12 [Concomitant]
     Active Substance: CYANOCOBALAMIN
  7. CALCIUM + VITAMIN D [Concomitant]
     Active Substance: CALCIUM\VITAMIN D
  8. FISH OIL [Concomitant]
     Active Substance: FISH OIL
  9. OMEGAN 3-6-9 [Concomitant]
  10. VITAMIN C [Concomitant]
     Active Substance: ASCORBIC ACID
  11. CARBAMAZEPINE ER [Concomitant]
     Active Substance: CARBAMAZEPINE
  12. VITAMIN E [Concomitant]
     Active Substance: .ALPHA.-TOCOPHEROL
  13. NALTREXONE, 1.5 MG CONRAD-MARR DRUG [Suspect]
     Active Substance: NALTREXONE
     Indication: INTERVERTEBRAL DISC DEGENERATION
     Dosage: 90 CAPSULE(S) AT BEDTIME TAKEN BY MOUTH
     Route: 048
     Dates: start: 20160602, end: 20160603
  14. STEEL ROD [Concomitant]
  15. AMITRIPTYLINE [Concomitant]
     Active Substance: AMITRIPTYLINE
  16. ACE/CODEINE [Concomitant]
  17. NALTREXONE, 1.5 MG CONRAD-MARR DRUG [Suspect]
     Active Substance: NALTREXONE
     Indication: OSTEOPOROSIS
     Dosage: 90 CAPSULE(S) AT BEDTIME TAKEN BY MOUTH
     Route: 048
     Dates: start: 20160602, end: 20160603
  18. VITAMIN B COMPLEX [Concomitant]
     Active Substance: CYANOCOBALAMIN\DEXPANTHENOL\NIACINAMIDE\PYRIDOXINE HYDROCHLORIDE\RIBOFLAVIN 5^-PHOSPHATE SODIUM\THIAMINE HYDROCHLORIDE\VITAMIN B COMPLEX
  19. NALTREXONE, 1.5 MG CONRAD-MARR DRUG [Suspect]
     Active Substance: NALTREXONE
     Indication: ARTHRITIS
     Dosage: 90 CAPSULE(S) AT BEDTIME TAKEN BY MOUTH
     Route: 048
     Dates: start: 20160602, end: 20160603
  20. STEEL  PLATE [Concomitant]
  21. PREVASTATIN SODIUM [Concomitant]
     Active Substance: PRAVASTATIN SODIUM
  22. GABAPENTIN. [Concomitant]
     Active Substance: GABAPENTIN
  23. INSULIN [Concomitant]
     Active Substance: INSULIN NOS
  24. ASPIRIN. [Concomitant]
     Active Substance: ASPIRIN
  25. ZOLPIDEM TARTRATE. [Concomitant]
     Active Substance: ZOLPIDEM TARTRATE

REACTIONS (7)
  - Anxiety [None]
  - Palpitations [None]
  - Insomnia [None]
  - Blood pressure increased [None]
  - Drug ineffective [None]
  - Fear [None]
  - Nervousness [None]

NARRATIVE: CASE EVENT DATE: 20160602
